FAERS Safety Report 13028669 (Version 4)
Quarter: 2017Q4

REPORT INFORMATION
  Report Type: Spontaneous
  Country: US (occurrence: US)
  Receive Date: 20161214
  Receipt Date: 20171127
  Transmission Date: 20180320
  Serious: Yes (Other)
  Sender: FDA-Public Use
  Company Number: US-ACTELION-A-NJ2016-146916

PATIENT
  Age: 57 Year
  Sex: Female

DRUGS (9)
  1. ASPIRIN. [Concomitant]
     Active Substance: ASPIRIN
  2. FOLIC ACID. [Concomitant]
     Active Substance: FOLIC ACID
  3. TRAMADOL. [Concomitant]
     Active Substance: TRAMADOL
  4. NIFEDIPINE. [Concomitant]
     Active Substance: NIFEDIPINE
  5. METHOTREXATE. [Concomitant]
     Active Substance: METHOTREXATE
  6. OPSUMIT [Suspect]
     Active Substance: MACITENTAN
     Indication: PULMONARY ARTERIAL HYPERTENSION
     Dosage: 10 MG, QD
     Route: 048
     Dates: start: 20161010
  7. PLAQUENIL [Concomitant]
     Active Substance: HYDROXYCHLOROQUINE SULFATE
  8. LIOTHYRONINE [Concomitant]
     Active Substance: LIOTHYRONINE
  9. OMEPRAZOLE. [Concomitant]
     Active Substance: OMEPRAZOLE

REACTIONS (5)
  - Systemic lupus erythematosus [Not Recovered/Not Resolved]
  - Muscle spasms [Unknown]
  - Scleroderma [Not Recovered/Not Resolved]
  - Oral infection [Unknown]
  - Drug dose omission [Unknown]

NARRATIVE: CASE EVENT DATE: 201711
